FAERS Safety Report 6410302-5 (Version None)
Quarter: 2009Q4

REPORT INFORMATION
  Report Type: 
  Country: None (occurrence: None)
  Receive Date: 20091022
  Receipt Date: 20091021
  Transmission Date: 20100525
  Serious: Yes (Other)
  Sender: FDA-Public Use
  Company Number: D0063270A

PATIENT

DRUGS (2)
  1. VIANI [Suspect]
     Route: 055
  2. BETA BLOCKER [Suspect]
     Route: 065

REACTIONS (1)
  - CHOKING [None]
